FAERS Safety Report 8277131-1 (Version None)
Quarter: 2012Q2

REPORT INFORMATION
  Report Type: 
  Country: None (occurrence: None)
  Receive Date: 20120412
  Receipt Date: 20120409
  Transmission Date: 20120825
  Serious: Yes (Other)
  Sender: FDA-Public Use
  Company Number: JP-PFIZER INC-2012088445

PATIENT

DRUGS (2)
  1. AROMASIN [Suspect]
  2. AMLODIPINE [Concomitant]

REACTIONS (1)
  - ANEURYSM [None]
